FAERS Safety Report 4576180-4 (Version None)
Quarter: 2005Q1

REPORT INFORMATION
  Report Type: 
  Country: None (occurrence: None)
  Receive Date: 20050201
  Receipt Date: 20050201
  Transmission Date: 20050727
  Serious: Yes (Life-Threatening)
  Sender: FDA-Public Use
  Company Number: None

PATIENT
  Age: 78 Year
  Sex: Male
  Weight: 60 kg

DRUGS (9)
  1. ZYVOX [Suspect]
     Indication: RESPIRATORY TRACT INFECTION
     Dosage: 600 MG IV Q 12 HRS
     Route: 042
     Dates: start: 20050114, end: 20050119
  2. ZYVOX [Suspect]
     Indication: STAPHYLOCOCCAL INFECTION
     Dosage: 600 MG IV Q 12 HRS
     Route: 042
     Dates: start: 20050114, end: 20050119
  3. XIGRIS [Concomitant]
  4. FAMOTIDINE [Concomitant]
  5. DESMOPRESSIN [Concomitant]
  6. PROPOFOL [Concomitant]
  7. PHENYLEPHRINE [Concomitant]
  8. LEVOFLOXACIN [Concomitant]
  9. CEFEPIME [Concomitant]

REACTIONS (2)
  - PLATELET COUNT DECREASED [None]
  - WHITE BLOOD CELL COUNT DECREASED [None]
